FAERS Safety Report 19118200 (Version 2)
Quarter: 2021Q2

REPORT INFORMATION
  Report Type: Spontaneous
  Country: GB (occurrence: GB)
  Receive Date: 20210409
  Receipt Date: 20210628
  Transmission Date: 20210717
  Serious: Yes (Hospitalization, Other)
  Sender: FDA-Public Use
  Company Number: IT-SUNOVION-2021SUN001306

PATIENT
  Age: 32 Year
  Sex: Male

DRUGS (1)
  1. LURASIDONE HYDROCHLORIDE. [Suspect]
     Active Substance: LURASIDONE HYDROCHLORIDE
     Indication: PRODUCT USED FOR UNKNOWN INDICATION
     Dosage: UNK
     Route: 048
     Dates: start: 20190529

REACTIONS (6)
  - Aggression [Unknown]
  - Condition aggravated [Unknown]
  - Intentional self-injury [Unknown]
  - Suicidal ideation [Unknown]
  - Mental disorder [Unknown]
  - Insomnia [Unknown]

NARRATIVE: CASE EVENT DATE: 20190326
